FAERS Safety Report 5641574-2 (Version None)
Quarter: 2008Q1

REPORT INFORMATION
  Report Type: 
  Country: None (occurrence: None)
  Receive Date: 20080227
  Receipt Date: 20071113
  Transmission Date: 20080703
  Serious: No
  Sender: FDA-Public Use
  Company Number: A0694150A

PATIENT
  Age: 36 Year
  Sex: Female

DRUGS (1)
  1. NICORETTE (MINT) [Suspect]
     Dates: start: 20071111, end: 20071111

REACTIONS (4)
  - HYPERSENSITIVITY [None]
  - ORAL PRURITUS [None]
  - SWELLING FACE [None]
  - URTICARIA [None]
